FAERS Safety Report 5281603-1 (Version None)
Quarter: 2007Q1

REPORT INFORMATION
  Report Type: 
  Country: None (occurrence: None)
  Receive Date: 20070330
  Receipt Date: 20070323
  Transmission Date: 20070707
  Serious: Yes (Hospitalization)
  Sender: FDA-Public Use
  Company Number: 2007CG00492

PATIENT
  Age: 13 Month
  Sex: Female
  Weight: 7 kg

DRUGS (6)
  1. DIPRIVAN [Suspect]
     Indication: SEDATION
     Route: 042
     Dates: start: 20070311, end: 20070311
  2. DIPRIVAN [Suspect]
     Route: 042
     Dates: start: 20070312, end: 20070312
  3. DIPRIVAN [Suspect]
     Route: 042
     Dates: start: 20070313, end: 20070323
  4. KETALAR [Suspect]
     Dates: start: 20070311
  5. HYPNOVEL [Suspect]
     Dates: start: 20070311
  6. SUFENTA [Suspect]
     Dates: start: 20070311

REACTIONS (3)
  - CHOLESTASIS [None]
  - CYTOLYTIC HEPATITIS [None]
  - OFF LABEL USE [None]
